FAERS Safety Report 23980624 (Version 2)
Quarter: 2024Q2

REPORT INFORMATION
  Report Type: Report from Study
  Country: TW (occurrence: TW)
  Receive Date: 20240617
  Receipt Date: 20240626
  Transmission Date: 20240716
  Serious: Yes (Other)
  Sender: FDA-Public Use
  Company Number: TW-ABBVIE-5799353

PATIENT
  Age: 67 Year
  Sex: Female
  Weight: 70 kg

DRUGS (6)
  1. RINVOQ [Suspect]
     Active Substance: UPADACITINIB
     Indication: Rheumatoid arthritis
     Dosage: FORM STRENGTH: 15 MILLIGRAM
     Route: 048
     Dates: start: 20240402, end: 20240521
  2. Biomycin [Concomitant]
     Indication: Wound
     Dosage: 40GM/TUBE QD?FORM STRENGTH: 40 MILLIGRAM
     Route: 061
     Dates: start: 20240521, end: 20240618
  3. FAMVIR [Concomitant]
     Active Substance: FAMCICLOVIR
     Indication: Herpes zoster
     Dosage: TIME INTERVAL: 0.33333333 DAYS: FORM STRENGTH: 250 MILLIGRAM
     Route: 048
     Dates: start: 20240521, end: 20240527
  4. NEURONTIN [Concomitant]
     Active Substance: GABAPENTIN
     Indication: Neuralgia
     Dosage: TIME INTERVAL: 0.33333333 DAYS: FORM STRENGTH: 100 MILLIGRAM
     Route: 048
     Dates: start: 20240528
  5. ACETAMINOPHEN\TRAMADOL [Concomitant]
     Active Substance: ACETAMINOPHEN\TRAMADOL
     Indication: Analgesic therapy
     Dosage: TIME INTERVAL: 0.33333333 DAYS
     Route: 048
     Dates: start: 20240521, end: 20240527
  6. METHOTREXATE [Concomitant]
     Active Substance: METHOTREXATE
     Indication: Immunosuppression
     Route: 048

REACTIONS (5)
  - Humerus fracture [Recovering/Resolving]
  - Fall [Unknown]
  - Dizziness [Recovered/Resolved]
  - Herpes zoster [Recovering/Resolving]
  - Postmenopause [Unknown]

NARRATIVE: CASE EVENT DATE: 20240517
